FAERS Safety Report 15900770 (Version 2)
Quarter: 2019Q3

REPORT INFORMATION
  Report Type: Spontaneous
  Country: US (occurrence: US)
  Receive Date: 20190201
  Receipt Date: 20190701
  Transmission Date: 20191004
  Serious: Yes (Other)
  Sender: FDA-Public Use
  Company Number: US-ASTRAZENECA-2019SE17303

PATIENT
  Age: 48 Year
  Sex: Male
  Weight: 92.5 kg

DRUGS (19)
  1. ZOLPIDEM [Concomitant]
     Active Substance: ZOLPIDEM TARTRATE
  2. ALLOPURINOL. [Concomitant]
     Active Substance: ALLOPURINOL
     Indication: GOUT
  3. ROLAIDS [Concomitant]
     Active Substance: CALCIUM CARBONATE\MAGNESIUM HYDROXIDE
     Dates: start: 2007, end: 2016
  4. NEXIUM [Suspect]
     Active Substance: ESOMEPRAZOLE MAGNESIUM
     Indication: GASTROOESOPHAGEAL REFLUX DISEASE
     Route: 048
     Dates: start: 2015
  5. CALCITRIOL. [Concomitant]
     Active Substance: CALCITRIOL
     Dates: start: 2007, end: 2016
  6. DIAZEPAM. [Concomitant]
     Active Substance: DIAZEPAM
  7. AMLODIPINE BESYLATE. [Concomitant]
     Active Substance: AMLODIPINE BESYLATE
  8. HYDROCODONE BITARTRATE AND ACETAMINOPHEN [Concomitant]
     Active Substance: ACETAMINOPHEN\HYDROCODONE BITARTRATE
  9. CITALOPRAM [Concomitant]
     Active Substance: CITALOPRAM HYDROBROMIDE
  10. FENTANYL. [Concomitant]
     Active Substance: FENTANYL
  11. PRILOSEC [Suspect]
     Active Substance: OMEPRAZOLE MAGNESIUM
     Indication: GASTROOESOPHAGEAL REFLUX DISEASE
     Route: 048
     Dates: start: 2007
  12. NEXIUM [Suspect]
     Active Substance: ESOMEPRAZOLE MAGNESIUM
     Indication: GASTROOESOPHAGEAL REFLUX DISEASE
     Route: 048
     Dates: start: 2008, end: 2009
  13. LISINOPRIL. [Concomitant]
     Active Substance: LISINOPRIL
     Indication: HYPERTENSION
     Dates: start: 2007, end: 2016
  14. ZOLPIDEM [Concomitant]
     Active Substance: ZOLPIDEM TARTRATE
     Dates: start: 2007, end: 2016
  15. PRILOSEC [Suspect]
     Active Substance: OMEPRAZOLE MAGNESIUM
     Indication: GASTROOESOPHAGEAL REFLUX DISEASE
     Route: 048
     Dates: start: 2007, end: 2016
  16. NEXIUM [Suspect]
     Active Substance: ESOMEPRAZOLE MAGNESIUM
     Indication: GASTROOESOPHAGEAL REFLUX DISEASE
     Dosage: GENERIC
     Route: 065
     Dates: start: 2016
  17. PRILOSEC [Suspect]
     Active Substance: OMEPRAZOLE MAGNESIUM
     Indication: GASTROOESOPHAGEAL REFLUX DISEASE
     Dosage: GENERIC
     Route: 065
     Dates: start: 2008
  18. VITAMIN D [Concomitant]
     Active Substance: VITAMIN D NOS
  19. TUMS [Concomitant]
     Active Substance: CALCIUM CARBONATE

REACTIONS (1)
  - Chronic kidney disease [Not Recovered/Not Resolved]

NARRATIVE: CASE EVENT DATE: 2008
